FAERS Safety Report 16074051 (Version 1)
Quarter: 2019Q1

REPORT INFORMATION
  Report Type: Spontaneous
  Country: DK (occurrence: DK)
  Receive Date: 20190314
  Receipt Date: 20190314
  Transmission Date: 20190418
  Serious: Yes (Other)
  Sender: FDA-Public Use
  Company Number: DK-PFIZER INC-2019106995

PATIENT
  Age: 34 Year
  Sex: Female

DRUGS (3)
  1. TAXOTERE [Suspect]
     Active Substance: DOCETAXEL
     Indication: BREAST CANCER
     Dosage: 135 MG, 80% DOSE. RECEIVED 4 CYCLES
     Dates: start: 20121022, end: 20121228
  2. SENDOXAN [Suspect]
     Active Substance: CYCLOPHOSPHAMIDE
     Indication: BREAST CANCER
     Dosage: 1000 MG, RECEIVED 4 CYCLES; 27JUL, 17AUG, 07SEP AND 28SEP2012
     Dates: start: 20120727, end: 20120928
  3. EPIRUBICIN HCL [Suspect]
     Active Substance: EPIRUBICIN HYDROCHLORIDE
     Indication: BREAST CANCER
     Dosage: 151 MG, RECEIVED 4 CYCLES; 27JUL, 17AUG, 07SEP AND 28SEP2012
     Dates: start: 20120727, end: 20120928

REACTIONS (6)
  - Neutropenia [Unknown]
  - Nausea [Unknown]
  - Pyrexia [Unknown]
  - Visual impairment [Unknown]
  - Fatigue [Unknown]
  - Cognitive disorder [Unknown]
